FAERS Safety Report 4894949-3 (Version None)
Quarter: 2006Q1

REPORT INFORMATION
  Report Type: 
  Country: None (occurrence: None)
  Receive Date: 20060130
  Receipt Date: 20050428
  Transmission Date: 20060701
  Serious: No
  Sender: FDA-Public Use
  Company Number: US-BRISTOL-MYERS SQUIBB COMPANY-12950366

PATIENT
  Age: 44 Year
  Sex: Female
  Weight: 113 kg

DRUGS (3)
  1. GLUCOPHAGE [Suspect]
     Dates: start: 20040801, end: 20040801
  2. ALLEGRA [Concomitant]
  3. VALTREX [Concomitant]

REACTIONS (1)
  - NAUSEA [None]
